FAERS Safety Report 5423188-2 (Version None)
Quarter: 2007Q3

REPORT INFORMATION
  Report Type: 
  Country: None (occurrence: None)
  Receive Date: 20070730
  Receipt Date: 20061101
  Transmission Date: 20080115
  Serious: Yes (Other)
  Sender: FDA-Public Use
  Company Number: 200615464BWH

PATIENT
  Age: 66 Year
  Sex: Female

DRUGS (24)
  1. AVELOX [Suspect]
     Indication: PROPHYLAXIS
     Dosage: QD, ORAL ; ORAL
     Route: 048
     Dates: start: 20060720, end: 20060722
  2. AVELOX [Suspect]
     Indication: PROPHYLAXIS
     Dosage: QD, ORAL ; ORAL
     Route: 048
     Dates: start: 20060901, end: 20060903
  3. LUCENTIS [Suspect]
     Dates: start: 20060701
  4. LUCENTIS [Suspect]
     Dates: start: 20060902
  5. ZYMAR OPHTHALMIC SOLUTION [Concomitant]
  6. DILTIAZEM [Concomitant]
  7. HUMALOG [Concomitant]
  8. HUMULIN N [INSULIN HUMAN] [Concomitant]
  9. K-DUR 10 [Concomitant]
  10. LESCOL [Concomitant]
  11. LISINOPRIL [Concomitant]
  12. NEURONTIN [Concomitant]
  13. PLAVIX [Concomitant]
  14. PROTONIX [Concomitant]
  15. ASPIRIN [Concomitant]
  16. SALSALATE [Concomitant]
  17. SYNTHROID [Concomitant]
  18. TOPAMAX [Concomitant]
  19. VIVELLE [Concomitant]
  20. ALPHAGAN P [Concomitant]
  21. COSOPT [Concomitant]
  22. PRED FORTE [Concomitant]
  23. RESTASIS [Concomitant]
  24. XALATAN [Concomitant]

REACTIONS (9)
  - CHEST PAIN [None]
  - HYPOAESTHESIA ORAL [None]
  - LIP BLISTER [None]
  - LIP SWELLING [None]
  - ORAL MUCOSAL BLISTERING [None]
  - ORAL MUCOSAL EXFOLIATION [None]
  - SKIN EXFOLIATION [None]
  - STOMATITIS [None]
  - SWELLING FACE [None]
